FAERS Safety Report 18390358 (Version 1)
Quarter: 2020Q4

REPORT INFORMATION
  Report Type: Spontaneous
  Country: US (occurrence: US)
  Receive Date: 20201015
  Receipt Date: 20201015
  Transmission Date: 20210114
  Serious: No
  Sender: FDA-Public Use
  Company Number: US-ALLERGAN-1953372US

PATIENT
  Sex: Female

DRUGS (1)
  1. RECTIV [Suspect]
     Active Substance: NITROGLYCERIN
     Indication: PRODUCT USED FOR UNKNOWN INDICATION
     Dosage: UNK, UNKNOWN

REACTIONS (4)
  - Headache [Unknown]
  - Dizziness [Unknown]
  - Hypotension [Unknown]
  - Malaise [Unknown]
